FAERS Safety Report 9915319 (Version 2)
Quarter: 2014Q1

REPORT INFORMATION
  Report Type: Spontaneous
  Country: US (occurrence: US)
  Receive Date: 20140221
  Receipt Date: 20140317
  Transmission Date: 20141002
  Serious: Yes (Other)
  Sender: FDA-Public Use
  Company Number: US-AMGEN-USASP2014011436

PATIENT
  Age: 74 Year
  Sex: Female

DRUGS (7)
  1. PROLIA [Suspect]
     Indication: OSTEOPOROSIS POSTMENOPAUSAL
     Dosage: UNK
     Route: 065
     Dates: start: 2012
  2. PROLIA [Suspect]
  3. CALCIUM                            /00060701/ [Concomitant]
  4. VITAMIN D                          /00107901/ [Concomitant]
  5. CRESTOR [Concomitant]
  6. BABY ASPIRIN [Concomitant]
  7. COQ10                              /00517201/ [Concomitant]

REACTIONS (5)
  - Nerve injury [Unknown]
  - Dental caries [Unknown]
  - Gingival disorder [Unknown]
  - Tooth fracture [Unknown]
  - Device breakage [Not Recovered/Not Resolved]
